FAERS Safety Report 6419563-X (Version None)
Quarter: 2009Q4

REPORT INFORMATION
  Report Type: 
  Country: None (occurrence: None)
  Receive Date: 20091027
  Receipt Date: 20091012
  Transmission Date: 20100525
  Serious: Yes (Hospitalization, Disabling)
  Sender: FDA-Public Use
  Company Number: 2009003114

PATIENT
  Age: 73 Year
  Sex: Male

DRUGS (3)
  1. TARCEVA [Suspect]
     Indication: LUNG NEOPLASM
     Dosage: 150 MG, QD, ORAL
     Route: 048
     Dates: start: 20090902, end: 20091006
  2. PARKEMED     (MEFENAMIC ACID) [Concomitant]
  3. FRAGMIN [Concomitant]

REACTIONS (2)
  - ABDOMINAL PAIN [None]
  - HAEMATURIA [None]
